FAERS Safety Report 14648472 (Version 1)
Quarter: 2018Q1

REPORT INFORMATION
  Report Type: Spontaneous
  Country: JP (occurrence: JP)
  Receive Date: 20180316
  Receipt Date: 20180316
  Transmission Date: 20180509
  Serious: Yes (Death, Other)
  Sender: FDA-Public Use
  Company Number: JP-PFIZER INC-2018104952

PATIENT

DRUGS (1)
  1. ZYVOX [Suspect]
     Active Substance: LINEZOLID
     Indication: STAPHYLOCOCCAL INFECTION
     Dosage: 600 MG, TWICE DAILY

REACTIONS (2)
  - Platelet count decreased [Fatal]
  - Candida infection [Fatal]

NARRATIVE: CASE EVENT DATE: 201802
